FAERS Safety Report 8451827-0 (Version None)
Quarter: 2012Q2

REPORT INFORMATION
  Report Type: 
  Country: None (occurrence: None)
  Receive Date: 20120620
  Receipt Date: 20120320
  Transmission Date: 20120825
  Serious: No
  Sender: FDA-Public Use
  Company Number: US-VERTEX PHARMACEUTICALS INC.-AE-2012-004030

PATIENT
  Sex: Female
  Weight: 68.1 kg

DRUGS (4)
  1. RIBAVIRIN [Concomitant]
     Indication: HEPATITIS C
     Route: 048
     Dates: start: 20120316
  2. PEGASYS [Concomitant]
     Indication: HEPATITIS C
     Route: 058
     Dates: start: 20120316
  3. INCIVEK [Suspect]
     Indication: HEPATITIS C
     Route: 048
     Dates: start: 20120316
  4. EQUATE MIGRAINE [Concomitant]
     Indication: DISCOMFORT
     Route: 048

REACTIONS (3)
  - FATIGUE [None]
  - HAEMORRHOIDS [None]
  - HAEMATOCHEZIA [None]
